FAERS Safety Report 10241765 (Version 3)
Quarter: 2016Q2

REPORT INFORMATION
  Report Type: Spontaneous
  Country: US (occurrence: US)
  Receive Date: 20140613
  Receipt Date: 20160420
  Transmission Date: 20160815
  Serious: Yes (Other)
  Sender: FDA-Public Use
  Company Number: ADR-2014-01004

PATIENT
  Sex: Female

DRUGS (1)
  1. LIORESAL [Suspect]
     Active Substance: BACLOFEN
     Dosage: 291.6MCG/DAY
     Route: 037

REACTIONS (8)
  - Discomfort [Unknown]
  - Muscle twitching [Unknown]
  - Weight decreased [Unknown]
  - Muscle fatigue [Unknown]
  - Agitation [Unknown]
  - Asthma [Unknown]
  - Coeliac disease [Unknown]
  - Breast calcifications [Unknown]
